FAERS Safety Report 17169420 (Version 1)
Quarter: 2019Q4

REPORT INFORMATION
  Report Type: Spontaneous
  Country: PT (occurrence: PT)
  Receive Date: 20191218
  Receipt Date: 20191218
  Transmission Date: 20200122
  Serious: Yes (Death, Hospitalization, Other)
  Sender: FDA-Public Use
  Company Number: NVSC2019PT071942

PATIENT
  Age: 83 Year
  Sex: Male

DRUGS (2)
  1. TRIPTORELIN [Suspect]
     Active Substance: TRIPTORELIN
     Indication: ANTIANDROGEN THERAPY
     Dosage: UNK
     Route: 065
  2. BICALUTAMIDE. [Suspect]
     Active Substance: BICALUTAMIDE
     Indication: ANTIANDROGEN THERAPY
     Dosage: UNK
     Route: 065

REACTIONS (8)
  - Prostate cancer [Fatal]
  - Respiratory failure [Fatal]
  - Death [Fatal]
  - Anaemia [Fatal]
  - Acute kidney injury [Fatal]
  - Metastases to lung [Fatal]
  - Ureteric rupture [Fatal]
  - Hydronephrosis [Fatal]
